FAERS Safety Report 22030942 (Version 2)
Quarter: 2023Q1

REPORT INFORMATION
  Report Type: Spontaneous
  Country: US (occurrence: US)
  Receive Date: 20230223
  Receipt Date: 20230306
  Transmission Date: 20230418
  Serious: Yes (Life-Threatening, Hospitalization)
  Sender: FDA-Public Use
  Company Number: US-TEVA-2023-US-2857543

PATIENT
  Age: 22 Year
  Sex: Female

DRUGS (4)
  1. LACTULOSE [Suspect]
     Active Substance: LACTULOSE
     Indication: Hyperammonaemia
     Route: 065
  2. LEVOCARNITINE [Suspect]
     Active Substance: LEVOCARNITINE
     Indication: Hyperammonaemia
     Route: 065
  3. RITUXIMAB [Suspect]
     Active Substance: RITUXIMAB
     Indication: Granulomatosis with polyangiitis
     Route: 065
  4. RIFAXIMIN [Suspect]
     Active Substance: RIFAXIMIN
     Indication: Hyperammonaemia
     Route: 065

REACTIONS (12)
  - Ureaplasma infection [Unknown]
  - Hyperammonaemia [Recovered/Resolved]
  - Shock [Unknown]
  - Coma [Unknown]
  - Pericardial effusion [Unknown]
  - Pelvic abscess [Unknown]
  - Polyarthritis [Unknown]
  - Encephalopathy [Recovered/Resolved]
  - Urinary tract infection [Unknown]
  - Hypotension [Unknown]
  - Lactic acidosis [Unknown]
  - Drug ineffective [Unknown]
